FAERS Safety Report 6231927-6 (Version None)
Quarter: 2009Q2

REPORT INFORMATION
  Report Type: 
  Country: None (occurrence: None)
  Receive Date: 20090616
  Receipt Date: 20090609
  Transmission Date: 20091009
  Serious: Yes (Other)
  Sender: FDA-Public Use
  Company Number: US-ELI_LILLY_AND_COMPANY-US200906002207

PATIENT
  Sex: Male

DRUGS (5)
  1. BYETTA [Suspect]
     Dosage: 10 UG, 2/D
     Route: 058
     Dates: start: 20080908, end: 20090517
  2. GLIMEPIRIDE [Concomitant]
     Indication: DIABETES MELLITUS
     Dosage: 8 MG, DAILY (1/D)
  3. METFORMIN HCL [Concomitant]
     Indication: DIABETES MELLITUS
     Dosage: 1000 MG, UNK
  4. NEURONTIN [Concomitant]
     Dosage: 300 MG, 3/D
     Dates: start: 20080101
  5. OMACOR [Concomitant]
     Indication: LIPIDS
     Dosage: 2 G, UNK

REACTIONS (2)
  - GALLBLADDER ENLARGEMENT [None]
  - PANCREATITIS ACUTE [None]
